FAERS Safety Report 6497917-3 (Version None)
Quarter: 2009Q4

REPORT INFORMATION
  Report Type: 
  Country: None (occurrence: None)
  Receive Date: 20091215
  Receipt Date: 20091204
  Transmission Date: 20100525
  Serious: Yes (Other)
  Sender: FDA-Public Use
  Company Number: US-JNJFOC-20090907574

PATIENT
  Sex: Female
  Weight: 83.46 kg

DRUGS (13)
  1. REMICADE [Suspect]
     Dosage: RECEIVED 2 INDUCTION DOSES
     Route: 042
     Dates: start: 20090820, end: 20090903
  2. REMICADE [Suspect]
     Indication: CROHN'S DISEASE
     Route: 042
     Dates: start: 20090820, end: 20090903
  3. AZATHIOPRINE [Concomitant]
  4. PREDNISONE [Concomitant]
  5. SOLU-MEDROL [Concomitant]
     Route: 042
  6. SOLU-MEDROL [Concomitant]
     Indication: PROPHYLAXIS
     Route: 042
  7. TYLENOL (CAPLET) [Concomitant]
     Route: 048
  8. TYLENOL (CAPLET) [Concomitant]
     Indication: PROPHYLAXIS
     Route: 048
  9. BENADRYL [Concomitant]
     Route: 048
  10. BENADRYL [Concomitant]
     Indication: PROPHYLAXIS
     Route: 048
  11. PRILOSEC [Concomitant]
  12. MUCINEX [Concomitant]
  13. AMBIEN [Concomitant]

REACTIONS (7)
  - DIZZINESS [None]
  - DYSPNOEA [None]
  - EPSTEIN-BARR VIRUS ANTIBODY POSITIVE [None]
  - LUNG NEOPLASM [None]
  - OEDEMA PERIPHERAL [None]
  - PYREXIA [None]
  - SOFT TISSUE NEOPLASM [None]
